FAERS Safety Report 10176038 (Version 2)
Quarter: 2014Q2

REPORT INFORMATION
  Report Type: Spontaneous
  Country: US (occurrence: None)
  Receive Date: 20140416
  Receipt Date: 20140604
  Transmission Date: 20141212
  Serious: No
  Sender: FDA-Public Use
  Company Number: 163-POMAL-13113851

PATIENT
  Age: 46 Year
  Sex: Female

DRUGS (8)
  1. POMALYST [Suspect]
     Indication: PLASMA CELL MYELOMA
     Dosage: 2 MG, 14 IN 28 D, PO
     Route: 048
     Dates: start: 201307
  2. ACYCLOVIR (ACICLOVIR) (ACICLOVIR) [Concomitant]
  3. ZOMETA (ZOLEDRONIC ACID) [Concomitant]
  4. PROTONIX [Concomitant]
  5. VANCOMYCIN [Concomitant]
  6. ASA (ACETYLSALICYLIC ACID) [Concomitant]
  7. DILFUCAN (FLUCONAZOLE) [Concomitant]
  8. DURAGESIC (FENTANYL) (POULTICE OR PATCH) [Concomitant]

REACTIONS (3)
  - Abdominal pain upper [None]
  - Bone pain [None]
  - Gastrointestinal pain [None]
